FAERS Safety Report 7350219-5 (Version None)
Quarter: 2011Q1

REPORT INFORMATION
  Report Type: 
  Country: None (occurrence: None)
  Receive Date: 20110309
  Receipt Date: 20110309
  Transmission Date: 20110831
  Serious: Yes (Other)
  Sender: FDA-Public Use
  Company Number: None

PATIENT
  Age: 27 Year
  Sex: Female
  Weight: 77.1115 kg

DRUGS (1)
  1. HYDROCORTISONE [Suspect]
     Indication: ADDISON'S DISEASE
     Dosage: 17.5 MG DAILY PO
     Route: 048
     Dates: start: 20100801, end: 20110307

REACTIONS (5)
  - FEELING ABNORMAL [None]
  - INFECTION [None]
  - PRODUCT SUBSTITUTION ISSUE [None]
  - DRUG EFFECT DECREASED [None]
  - FATIGUE [None]
